FAERS Safety Report 8307003-5 (Version None)
Quarter: 2012Q2

REPORT INFORMATION
  Report Type: 
  Country: None (occurrence: None)
  Receive Date: 20120424
  Receipt Date: 20120417
  Transmission Date: 20120825
  Serious: Yes (Other)
  Sender: FDA-Public Use
  Company Number: CA-UCBSA-055562

PATIENT
  Age: 67 Year
  Sex: Female
  Weight: 54.4 kg

DRUGS (10)
  1. CALCIUM CARBONATE [Concomitant]
  2. PREDNISONE TAB [Concomitant]
     Indication: RHEUMATOID ARTHRITIS
     Route: 048
  3. VITAMIN B-12 [Concomitant]
     Indication: VITAMIN B12 DEFICIENCY
  4. RISEDRONATE SODIUM [Concomitant]
     Indication: MINERAL SUPPLEMENTATION
  5. FOLIC ACID [Concomitant]
     Route: 048
  6. ATENOLOL [Concomitant]
     Indication: BLOOD PRESSURE
     Route: 048
  7. METHOTREXATE [Concomitant]
     Indication: RHEUMATOID ARTHRITIS
  8. ATACAND [Concomitant]
     Indication: BLOOD PRESSURE
     Route: 048
  9. SULFASALAZINE [Concomitant]
     Indication: RHEUMATOID ARTHRITIS
  10. CIMZIA [Suspect]
     Indication: RHEUMATOID ARTHRITIS
     Route: 058
     Dates: start: 20120402

REACTIONS (2)
  - LOWER LIMB FRACTURE [None]
  - FALL [None]
